FAERS Safety Report 7643800-7 (Version None)
Quarter: 2011Q3

REPORT INFORMATION
  Report Type: 
  Country: None (occurrence: None)
  Receive Date: 20110729
  Receipt Date: 20110721
  Transmission Date: 20111222
  Serious: Yes (Other)
  Sender: FDA-Public Use
  Company Number: RU-SHIRE-ALL1-2011-01849

PATIENT
  Sex: Female
  Weight: 63 kg

DRUGS (5)
  1. FOLICI AEIOLO [Concomitant]
     Indication: PRODUCT USED FOR UNKNOWN INDICATION
     Dosage: 2 MG, UNKNOWN
     Route: 065
     Dates: start: 20050101
  2. ANAGRELIDE HCL [Suspect]
     Dosage: 3 MG, 1X/DAY:QD
     Route: 048
     Dates: start: 20110701
  3. HYDROXYUREA [Concomitant]
     Indication: THROMBOCYTOSIS
     Dosage: 1 G, UNKNOWN
     Route: 065
     Dates: start: 20060101
  4. ANAGRELIDE HCL [Suspect]
     Indication: THROMBOCYTOSIS
     Dosage: UNK UNK, UNKNOWN
     Route: 048
     Dates: start: 20100301, end: 20110701
  5. CLOPIDOGREL [Concomitant]
     Indication: PRODUCT USED FOR UNKNOWN INDICATION
     Dosage: 75 MG, UNKNOWN
     Route: 065
     Dates: start: 20090101

REACTIONS (3)
  - COMPLICATION OF PREGNANCY [None]
  - MATERNAL EXPOSURE DURING PREGNANCY [None]
  - PLATELET COUNT INCREASED [None]
